FAERS Safety Report 25204249 (Version 1)
Quarter: 2025Q2

REPORT INFORMATION
  Report Type: Spontaneous
  Country: PT (occurrence: PT)
  Receive Date: 20250416
  Receipt Date: 20250416
  Transmission Date: 20250717
  Serious: Yes (Other)
  Sender: MYLAN
  Company Number: PT-SA-2025SA093696

PATIENT
  Age: 53 Year
  Sex: Male

DRUGS (1)
  1. AMIODARONE [Suspect]
     Active Substance: AMIODARONE
     Indication: Product used for unknown indication

REACTIONS (4)
  - Insomnia [Recovered/Resolved]
  - Malaise [Recovered/Resolved]
  - Hyperthyroidism [Recovered/Resolved]
  - Tremor [Recovered/Resolved]
